FAERS Safety Report 9460096 (Version 1)
Quarter: 2013Q3

REPORT INFORMATION
  Report Type: Report from Study
  Country: CA (occurrence: CA)
  Receive Date: 20130815
  Receipt Date: 20130815
  Transmission Date: 20140515
  Serious: Yes (Other)
  Sender: FDA-Public Use
  Company Number: CA-INCYTE CORPORATION-2013IN001835

PATIENT
  Sex: Male

DRUGS (2)
  1. JAKAVI [Suspect]
     Indication: MYELOFIBROSIS
     Dosage: 15 MG, BID
     Route: 048
     Dates: start: 201209
  2. JAKAVI [Suspect]
     Dosage: 15 MG, BID
     Dates: start: 201209

REACTIONS (2)
  - Device related sepsis [Unknown]
  - Full blood count decreased [Unknown]
